FAERS Safety Report 25335596 (Version 1)
Quarter: 2025Q2

REPORT INFORMATION
  Report Type: Spontaneous
  Country: IN (occurrence: None)
  Receive Date: 20250520
  Receipt Date: 20250520
  Transmission Date: 20250716
  Serious: Yes (Other)
  Sender: ENCUBE ETHICALS
  Company Number: IN-Encube-001834

PATIENT
  Age: 45 Year
  Sex: Male

DRUGS (3)
  1. TACROLIMUS [Suspect]
     Active Substance: TACROLIMUS
     Indication: Graft versus host disease
  2. RUXOLITINIB [Suspect]
     Active Substance: RUXOLITINIB
     Indication: Graft versus host disease
  3. PREDNISONE [Concomitant]
     Active Substance: PREDNISONE
     Indication: Graft versus host disease
     Route: 048

REACTIONS (6)
  - Necrotising retinitis [Recovered/Resolved]
  - Keratitis viral [Recovered/Resolved]
  - Off label use [Unknown]
  - Retinal detachment [Not Recovered/Not Resolved]
  - Disseminated varicella zoster virus infection [Recovered/Resolved]
  - Eczema herpeticum [Recovered/Resolved]
